FAERS Safety Report 8786518 (Version 2)
Quarter: 2013Q4

REPORT INFORMATION
  Report Type: Spontaneous
  Country: US (occurrence: US)
  Receive Date: 20120914
  Receipt Date: 20131030
  Transmission Date: 20140711
  Serious: No
  Sender: FDA-Public Use
  Company Number: US-009507513-1209USA002919

PATIENT
  Age: 51 Year
  Sex: Female

DRUGS (4)
  1. JANUMET XR [Suspect]
     Indication: TYPE 2 DIABETES MELLITUS
     Dosage: 50MG1000MG, QD
     Route: 048
     Dates: start: 20120827, end: 20120903
  2. GLIPIZIDE [Concomitant]
     Dosage: 10 MG, BID
  3. NAPROXEN [Concomitant]
  4. TENORETIC [Concomitant]

REACTIONS (4)
  - Vision blurred [Unknown]
  - Eye swelling [Unknown]
  - Swelling face [Unknown]
  - Rash macular [Unknown]
